FAERS Safety Report 15646607 (Version 2)
Quarter: 2018Q4

REPORT INFORMATION
  Report Type: Spontaneous
  Country: DE (occurrence: DE)
  Receive Date: 20181122
  Receipt Date: 20181213
  Transmission Date: 20190205
  Serious: Yes (Other)
  Sender: FDA-Public Use
  Company Number: DE-ALK-ABELLO A/S-2018AA004055

PATIENT

DRUGS (2)
  1. GRAZAX [Suspect]
     Active Substance: PHLEUM PRATENSE POLLEN
     Indication: HYPERSENSITIVITY
     Dosage: 75000 SQ-T
     Dates: start: 20181105, end: 20181105
  2. FLUTIDE [Concomitant]
     Active Substance: FLUTICASONE PROPIONATE
     Dosage: 1-0-1
     Route: 048

REACTIONS (3)
  - Throat tightness [Recovered/Resolved]
  - Cardiovascular symptom [Recovered/Resolved]
  - Urticaria [Recovered/Resolved]

NARRATIVE: CASE EVENT DATE: 20181105
